FAERS Safety Report 9306504 (Version 1)
Quarter: 2013Q2

REPORT INFORMATION
  Report Type: Spontaneous
  Country: US (occurrence: US)
  Receive Date: 20130523
  Receipt Date: 20130523
  Transmission Date: 20140414
  Serious: No
  Sender: FDA-Public Use
  Company Number: US-ASTRAZENECA-2013SE34529

PATIENT
  Age: 88 Year
  Sex: Male

DRUGS (3)
  1. LISINOPRIL [Suspect]
     Route: 048
  2. TOPROL XL [Suspect]
     Route: 048
  3. DILITIAZEM [Concomitant]

REACTIONS (1)
  - Blood pressure fluctuation [Unknown]
